FAERS Safety Report 7321706-0 (Version None)
Quarter: 2011Q1

REPORT INFORMATION
  Report Type: 
  Country: None (occurrence: None)
  Receive Date: 20110228
  Receipt Date: 20110221
  Transmission Date: 20110831
  Serious: Yes (Other)
  Sender: FDA-Public Use
  Company Number: TR-PFIZER INC-2011038463

PATIENT
  Age: 46 Year
  Sex: Male

DRUGS (2)
  1. SILDENAFIL CITRATE [Suspect]
     Dosage: 50 MG, UNK
  2. ALCOHOL [Suspect]
     Dosage: 20-25 UNITS

REACTIONS (3)
  - APHASIA [None]
  - HEMIPLEGIA [None]
  - CEREBRAL INFARCTION [None]
